FAERS Safety Report 21015796 (Version 1)
Quarter: 2022Q2

REPORT INFORMATION
  Report Type: Spontaneous
  Country: US (occurrence: None)
  Receive Date: 20220627
  Receipt Date: 20220627
  Transmission Date: 20220721
  Serious: Yes (Hospitalization)
  Sender: FDA-Public Use
  Company Number: None

PATIENT
  Sex: Female

DRUGS (1)
  1. MYCOPHENOLIC ACID [Suspect]
     Active Substance: MYCOPHENOLIC ACID
     Indication: Sarcoidosis
     Dosage: FREQUENCY : TWICE A DAY;?
     Route: 048
     Dates: start: 202002

REACTIONS (2)
  - Therapeutic product effect decreased [None]
  - Hepatic failure [None]
